FAERS Safety Report 10958618 (Version 1)
Quarter: 2015Q1

REPORT INFORMATION
  Report Type: Report from Study
  Country: US (occurrence: US)
  Receive Date: 20150326
  Receipt Date: 20150326
  Transmission Date: 20150721
  Serious: Yes (Hospitalization, Other)
  Sender: FDA-Public Use
  Company Number: US-GILEAD-2015-0144807

PATIENT
  Age: 96 Year
  Sex: Female

DRUGS (15)
  1. ADCIRCA [Concomitant]
     Active Substance: TADALAFIL
  2. TRAMADOL [Concomitant]
     Active Substance: TRAMADOL
  3. FISH OIL [Concomitant]
     Active Substance: FISH OIL
  4. MELATONIN [Concomitant]
     Active Substance: MELATONIN
  5. CITALOPRAM [Concomitant]
     Active Substance: CITALOPRAM HYDROBROMIDE
  6. LASIX [Concomitant]
     Active Substance: FUROSEMIDE
  7. FUROSEMIDE. [Concomitant]
     Active Substance: FUROSEMIDE
  8. DILTIAZEM [Concomitant]
     Active Substance: DILTIAZEM
  9. CARBIDOPA/LEVODOPA [Concomitant]
     Active Substance: CARBIDOPA\LEVODOPA
  10. LIDODERM [Concomitant]
     Active Substance: LIDOCAINE
  11. LATANOPROST. [Concomitant]
     Active Substance: LATANOPROST
  12. AMBRISENTAN [Suspect]
     Active Substance: AMBRISENTAN
     Indication: PULMONARY ARTERIAL HYPERTENSION
     Dosage: 10 MG, QD
     Route: 065
     Dates: start: 20140711
  13. PRILOSEC [Concomitant]
     Active Substance: OMEPRAZOLE MAGNESIUM
  14. ASPIRIN                            /00002701/ [Concomitant]
     Active Substance: ASPIRIN
  15. CALCIUM [Concomitant]
     Active Substance: CALCIUM

REACTIONS (1)
  - Unevaluable event [Unknown]

NARRATIVE: CASE EVENT DATE: 20150312
